FAERS Safety Report 5485193-X (Version None)
Quarter: 2007Q4

REPORT INFORMATION
  Report Type: 
  Country: None (occurrence: None)
  Receive Date: 20071010
  Receipt Date: 20070916
  Transmission Date: 20080405
  Serious: Yes (Other)
  Sender: FDA-Public Use
  Company Number: STI-2007-01540

PATIENT
  Sex: Female

DRUGS (1)
  1. 516B CLINDOXYL GEL (CLINDAMYCIN + BENZOYL PEROXIDE) (BENZOYL PEROXIDE [Suspect]
     Dosage: (ONCE) TOPICAL
     Route: 061

REACTIONS (4)
  - APPLICATION SITE IRRITATION [None]
  - APPLICATION SITE PAIN [None]
  - APPLICATION SITE PRURITUS [None]
  - APPLICATION SITE SWELLING [None]
